FAERS Safety Report 4797444-5 (Version None)
Quarter: 2005Q4

REPORT INFORMATION
  Report Type: 
  Country: None (occurrence: None)
  Receive Date: 20051006
  Receipt Date: 20051006
  Transmission Date: 20060501
  Serious: Yes (Hospitalization)
  Sender: FDA-Public Use
  Company Number: None

PATIENT
  Sex: Male

DRUGS (9)
  1. PENTAMIDINE [Suspect]
     Indication: PNEUMOCYSTIS JIROVECI PNEUMONIA
     Dosage: 210 MG IV Q 24 H
     Route: 042
     Dates: start: 20050401, end: 20050501
  2. TENOFOVIR [Concomitant]
  3. RITONAVIR [Concomitant]
  4. ATANAZAVIR [Concomitant]
  5. ETHAMBUTOL HCL [Concomitant]
  6. ATOVAQUONE [Concomitant]
  7. BACTRIM [Concomitant]
  8. ZIDOVUDINE [Concomitant]
  9. AZITHROMYCIN [Concomitant]

REACTIONS (2)
  - CATHETER RELATED COMPLICATION [None]
  - DEEP VEIN THROMBOSIS [None]
